FAERS Safety Report 19631184 (Version 2)
Quarter: 2021Q3

REPORT INFORMATION
  Report Type: Spontaneous
  Country: US (occurrence: US)
  Receive Date: 20210728
  Receipt Date: 20210811
  Transmission Date: 20211014
  Serious: Yes (Death, Hospitalization, Other)
  Sender: FDA-Public Use
  Company Number: US-PFIZER INC-2021895384

PATIENT
  Age: 67 Year
  Sex: Male
  Weight: 113.4 kg

DRUGS (1)
  1. INLYTA [Suspect]
     Active Substance: AXITINIB
     Indication: RENAL CELL CARCINOMA
     Dosage: UNK
     Dates: start: 202104, end: 202105

REACTIONS (25)
  - Neoplasm progression [Fatal]
  - Nasopharyngitis [Unknown]
  - Oedema peripheral [Unknown]
  - Pneumonia [Fatal]
  - Cough [Unknown]
  - Movement disorder [Unknown]
  - Hepatic enzyme increased [Unknown]
  - Peripheral swelling [Unknown]
  - Red blood cell abnormality [Unknown]
  - Hypoxia [Fatal]
  - Fluid retention [Unknown]
  - Nail discolouration [Unknown]
  - Blood potassium increased [Unknown]
  - Sepsis [Fatal]
  - Gastrointestinal haemorrhage [Unknown]
  - Haematochezia [Unknown]
  - Immune system disorder [Unknown]
  - Glossodynia [Unknown]
  - Oral pain [Unknown]
  - Acute respiratory failure [Fatal]
  - Swollen tongue [Unknown]
  - Oropharyngeal pain [Unknown]
  - Acute myocardial infarction [Fatal]
  - Internal haemorrhage [Unknown]
  - Rhinorrhoea [Unknown]

NARRATIVE: CASE EVENT DATE: 202105
